FAERS Safety Report 10358190 (Version 1)
Quarter: 2014Q3

REPORT INFORMATION
  Report Type: Spontaneous
  Country: IT (occurrence: IT)
  Receive Date: 20140801
  Receipt Date: 20140801
  Transmission Date: 20150326
  Serious: Yes (Death, Hospitalization)
  Sender: FDA-Public Use
  Company Number: IT-BAYER-2014-111352

PATIENT
  Age: 69 Year
  Sex: Male

DRUGS (4)
  1. OMEPRAZOLE. [Concomitant]
     Active Substance: OMEPRAZOLE
     Dosage: DAILY DOSE 20 MG
     Route: 048
  2. VERTISERC [Concomitant]
     Active Substance: BETAHISTINE HYDROCHLORIDE
     Dosage: DAILY DOSE 48 MG
     Route: 048
  3. SIMVASTATIN. [Concomitant]
     Active Substance: SIMVASTATIN
     Dosage: DAILY DOSE 20 MG
     Route: 048
  4. CARDIOASPIRIN [Suspect]
     Active Substance: ASPIRIN
     Indication: PROPHYLAXIS
     Dosage: DAILY DOSE 100 MG
     Route: 048
     Dates: start: 20100101, end: 20140528

REACTIONS (2)
  - Cerebral haemorrhage [Fatal]
  - Hemiparesis [Fatal]

NARRATIVE: CASE EVENT DATE: 20140528
